FAERS Safety Report 18109884 (Version 6)
Quarter: 2021Q2

REPORT INFORMATION
  Report Type: Report from Study
  Country: CA (occurrence: CA)
  Receive Date: 20200804
  Receipt Date: 20210409
  Transmission Date: 20210717
  Serious: Yes (Other)
  Sender: FDA-Public Use
  Company Number: CA-NALPROPION PHARMACEUTICALS INC.-2020-010739

PATIENT

DRUGS (10)
  1. CONTRAVE [Suspect]
     Active Substance: BUPROPION HYDROCHLORIDE\NALTREXONE HYDROCHLORIDE
     Indication: WEIGHT CONTROL
     Dosage: STRENGTH: 90MG/8MG, STARTED APPROXIMATELY ON 18/MAY/2020, FIRST ATTEMPT
     Route: 048
     Dates: start: 202005, end: 2020
  2. CONTRAVE [Suspect]
     Active Substance: BUPROPION HYDROCHLORIDE\NALTREXONE HYDROCHLORIDE
     Dosage: STRENGTH: 90MG/8MG  (1 DOSAGE FORMS 1 IN 12 HR)
     Route: 048
     Dates: start: 20210129, end: 20210211
  3. CONTRAVE [Suspect]
     Active Substance: BUPROPION HYDROCHLORIDE\NALTREXONE HYDROCHLORIDE
     Dosage: STRENGTH: 90MG/8MG (1 DOSAGE FORMS, 1 IN 1 D)
     Route: 048
     Dates: start: 20210115, end: 20210128
  4. MAXALT [Concomitant]
     Active Substance: RIZATRIPTAN BENZOATE
     Indication: MIGRAINE
     Dosage: AS NEEDED (10 MG)
     Route: 048
  5. CONTRAVE [Suspect]
     Active Substance: BUPROPION HYDROCHLORIDE\NALTREXONE HYDROCHLORIDE
     Dosage: STRENGTH: 90MG/8MG (2 DOSAGE FORMS, 1 IN 12 HR)
     Route: 048
     Dates: start: 20200608, end: 2020
  6. CONTRAVE [Suspect]
     Active Substance: BUPROPION HYDROCHLORIDE\NALTREXONE HYDROCHLORIDE
     Dosage: STRENGTH: 90MG/8MG 2 TABLETS IN THE MORNING AND 1 TABLET IN THE EVENING
     Route: 048
     Dates: start: 2020, end: 2020
  7. CONTRAVE [Suspect]
     Active Substance: BUPROPION HYDROCHLORIDE\NALTREXONE HYDROCHLORIDE
     Dosage: STRENGTH: 90MG/8MG, (2 DOSAGE FORMS,1 IN 12 HR)
     Route: 048
     Dates: start: 2020, end: 2020
  8. CONTRAVE [Suspect]
     Active Substance: BUPROPION HYDROCHLORIDE\NALTREXONE HYDROCHLORIDE
     Dosage: 90/8 MG, 3 TABLETS DAILY (STOPPED APPROXIMATLEY ON 09/NOV/2020)
     Route: 048
     Dates: start: 20201104, end: 202011
  9. CONTRAVE [Suspect]
     Active Substance: BUPROPION HYDROCHLORIDE\NALTREXONE HYDROCHLORIDE
     Dosage: STRENGTH: 90MG/8MG, 1 TAB AM, 2 TABS PM
     Route: 048
     Dates: start: 20210212
  10. CONTRAVE [Suspect]
     Active Substance: BUPROPION HYDROCHLORIDE\NALTREXONE HYDROCHLORIDE
     Dosage: STRENGTH: 90MG/8MG, 2 TABS PM
     Route: 048
     Dates: end: 20210320

REACTIONS (21)
  - Gastric disorder [Not Recovered/Not Resolved]
  - Dyspepsia [Not Recovered/Not Resolved]
  - Product dose omission issue [Unknown]
  - Product prescribing error [Unknown]
  - Drug titration error [Unknown]
  - Symptom recurrence [Not Recovered/Not Resolved]
  - Product odour abnormal [Unknown]
  - Sleep apnoea syndrome [Not Recovered/Not Resolved]
  - Hunger [Unknown]
  - Feeling abnormal [Recovered/Resolved]
  - Therapeutic response unexpected [Unknown]
  - Gout [Recovered/Resolved]
  - Inability to afford medication [Unknown]
  - Regressive behaviour [Unknown]
  - Weight increased [Recovering/Resolving]
  - Libido decreased [Recovering/Resolving]
  - Memory impairment [Not Recovered/Not Resolved]
  - Insurance issue [Unknown]
  - Taste disorder [Recovered/Resolved]
  - Drug tolerance [Unknown]
  - Headache [Unknown]

NARRATIVE: CASE EVENT DATE: 2020
